FAERS Safety Report 4681962-4 (Version None)
Quarter: 2005Q2

REPORT INFORMATION
  Report Type: 
  Country: None (occurrence: None)
  Receive Date: 20050606
  Receipt Date: 20050404
  Transmission Date: 20051028
  Serious: Yes (Hospitalization)
  Sender: FDA-Public Use
  Company Number: JP-SP-2005-00698

PATIENT
  Age: 78 Year
  Sex: Male

DRUGS (1)
  1. BCG - IT (CONNAUGHT) [Suspect]
     Indication: BLADDER CANCER
     Route: 043
     Dates: start: 20050201

REACTIONS (2)
  - BOVINE TUBERCULOSIS [None]
  - EPIDIDYMITIS [None]
